FAERS Safety Report 6974528-4 (Version None)
Quarter: 2010Q3

REPORT INFORMATION
  Report Type: 
  Country: None (occurrence: None)
  Receive Date: 20100909
  Receipt Date: 20090115
  Transmission Date: 20110219
  Serious: No
  Sender: FDA-Public Use
  Company Number: US-WYE-H06427708

PATIENT
  Sex: Male

DRUGS (1)
  1. TORISEL [Suspect]

REACTIONS (2)
  - NASAL CONGESTION [None]
  - SALIVARY HYPERSECRETION [None]
